FAERS Safety Report 4758981-2 (Version None)
Quarter: 2005Q3

REPORT INFORMATION
  Report Type: 
  Country: None (occurrence: None)
  Receive Date: 20050901
  Receipt Date: 20050816
  Transmission Date: 20060218
  Serious: Yes (Other)
  Sender: FDA-Public Use
  Company Number: US-BRISTOL-MYERS SQUIBB COMPANY-13084256

PATIENT
  Sex: Female

DRUGS (5)
  1. ESTRACE [Suspect]
     Indication: MENOPAUSAL SYMPTOMS
  2. ESTRATEST [Suspect]
     Indication: MENOPAUSAL SYMPTOMS
  3. PREMARIN [Suspect]
     Indication: MENOPAUSAL SYMPTOMS
  4. PROVERA [Suspect]
     Indication: MENOPAUSAL SYMPTOMS
  5. ESTRADERM [Suspect]
     Indication: MENOPAUSAL SYMPTOMS

REACTIONS (1)
  - BREAST CANCER [None]
